FAERS Safety Report 19012751 (Version 1)
Quarter: 2021Q1

REPORT INFORMATION
  Report Type: Spontaneous
  Country: US (occurrence: US)
  Receive Date: 20210316
  Receipt Date: 20210316
  Transmission Date: 20210420
  Serious: No
  Sender: FDA-Public Use
  Company Number: None

PATIENT
  Age: 71 Year
  Sex: Female
  Weight: 68.4 kg

DRUGS (1)
  1. IMATINIB. [Suspect]
     Active Substance: IMATINIB MESYLATE
     Indication: FALL
     Route: 048
     Dates: start: 20171101

REACTIONS (2)
  - Blood pressure fluctuation [None]
  - Decreased appetite [None]

NARRATIVE: CASE EVENT DATE: 20210316
